FAERS Safety Report 12837556 (Version 1)
Quarter: 2016Q4

REPORT INFORMATION
  Report Type: Spontaneous
  Country: US (occurrence: US)
  Receive Date: 20161012
  Receipt Date: 20161012
  Transmission Date: 20170207
  Serious: Yes (Hospitalization, Other)
  Sender: FDA-Public Use
  Company Number: US-JAZZ-2016-US-019504

PATIENT
  Age: 39 Year
  Sex: Male

DRUGS (1)
  1. XYREM [Suspect]
     Active Substance: SODIUM OXYBATE
     Indication: PRODUCT USED FOR UNKNOWN INDICATION

REACTIONS (15)
  - Acidosis [Recovering/Resolving]
  - Liver function test abnormal [Recovering/Resolving]
  - Vomiting [Recovering/Resolving]
  - Rash [Recovering/Resolving]
  - Blood creatine phosphokinase increased [Recovering/Resolving]
  - Electrolyte imbalance [Recovering/Resolving]
  - Rhabdomyolysis [Recovering/Resolving]
  - Diarrhoea [Recovering/Resolving]
  - Confusional state [Recovering/Resolving]
  - Intentional product misuse [Unknown]
  - Conduction disorder [Recovering/Resolving]
  - Adverse drug reaction [Recovering/Resolving]
  - Anion gap increased [Recovering/Resolving]
  - Blood creatinine increased [Recovering/Resolving]
  - Tremor [Recovering/Resolving]
